FAERS Safety Report 25718341 (Version 1)
Quarter: 2025Q3

REPORT INFORMATION
  Report Type: Spontaneous
  Country: US (occurrence: US)
  Receive Date: 20250824
  Receipt Date: 20250824
  Transmission Date: 20251021
  Serious: Yes (Death, Life-Threatening, Hospitalization, Other)
  Sender: LUPIN
  Company Number: US-LUPIN PHARMACEUTICALS INC.-2025-07384

PATIENT
  Age: 48 Year
  Sex: Female

DRUGS (2)
  1. PROPRANOLOL HYDROCHLORIDE [Suspect]
     Active Substance: PROPRANOLOL HYDROCHLORIDE
     Indication: Product used for unknown indication
     Route: 065
  2. BUPROPION [Suspect]
     Active Substance: BUPROPION
     Indication: Product used for unknown indication
     Route: 065

REACTIONS (8)
  - Cardiogenic shock [Fatal]
  - Intentional overdose [Fatal]
  - Ventricular tachycardia [Fatal]
  - Intentional self-injury [Fatal]
  - Electrocardiogram QRS complex prolonged [Fatal]
  - Hypotension [Unknown]
  - Seizure [Recovered/Resolved]
  - Metabolic acidosis [Unknown]
